FAERS Safety Report 4765679-3 (Version None)
Quarter: 2005Q3

REPORT INFORMATION
  Report Type: 
  Country: None (occurrence: None)
  Receive Date: 20050908
  Receipt Date: 20050908
  Transmission Date: 20060218
  Serious: Yes (Hospitalization)
  Sender: FDA-Public Use
  Company Number: None

PATIENT
  Age: 58 Year
  Sex: Male
  Weight: 92.5338 kg

DRUGS (2)
  1. GLEEVEC [Suspect]
     Indication: LUNG NEOPLASM MALIGNANT
     Dosage: 400 MG DAILY PO
     Route: 048
     Dates: start: 20050729, end: 20050902
  2. TAXOTERE [Suspect]
     Dosage: 55 MG WEEKLY IV
     Route: 042
     Dates: start: 20050729, end: 20050901

REACTIONS (3)
  - FALL [None]
  - FRACTURE [None]
  - SYNCOPE [None]
